FAERS Safety Report 23398755 (Version 1)
Quarter: 2024Q1

REPORT INFORMATION
  Report Type: Spontaneous
  Country: CN (occurrence: CN)
  Receive Date: 20240112
  Receipt Date: 20240112
  Transmission Date: 20240410
  Serious: Yes (Hospitalization, Other)
  Sender: FDA-Public Use
  Company Number: CN-GSK-CN2024GSK003008

PATIENT

DRUGS (8)
  1. DOLUTEGRAVIR [Suspect]
     Active Substance: DOLUTEGRAVIR
     Indication: HIV infection
     Dosage: UNK
  2. LAMIVUDINE [Suspect]
     Active Substance: LAMIVUDINE
     Indication: HIV infection
     Dosage: UNK
  3. TENOFOVIR DISOPROXIL FUMARATE [Suspect]
     Active Substance: TENOFOVIR DISOPROXIL FUMARATE
     Indication: HIV infection
     Dosage: UNK
  4. CLARITHROMYCIN [Concomitant]
     Active Substance: CLARITHROMYCIN
     Indication: Atypical mycobacterial pneumonia
     Dosage: UNK
     Route: 048
  5. ETHAMBUTOL [Concomitant]
     Active Substance: ETHAMBUTOL HYDROCHLORIDE
     Indication: Atypical mycobacterial pneumonia
     Dosage: UNK
     Route: 048
  6. RIFABUTIN [Concomitant]
     Active Substance: RIFABUTIN
     Indication: Atypical mycobacterial pneumonia
     Dosage: UNK
     Route: 048
  7. MOXIFLOXACIN [Concomitant]
     Active Substance: MOXIFLOXACIN
     Indication: Atypical mycobacterial pneumonia
     Dosage: UNK
     Route: 048
  8. LINEZOLID [Concomitant]
     Active Substance: LINEZOLID
     Indication: Atypical mycobacterial pneumonia
     Dosage: UNK

REACTIONS (2)
  - Immune reconstitution inflammatory syndrome [Recovered/Resolved]
  - Atypical mycobacterial infection [Recovered/Resolved]
